FAERS Safety Report 6961266-7 (Version None)
Quarter: 2010Q3

REPORT INFORMATION
  Report Type: 
  Country: None (occurrence: None)
  Receive Date: 20100901
  Receipt Date: 20100824
  Transmission Date: 20110219
  Serious: Yes (Hospitalization)
  Sender: FDA-Public Use
  Company Number: A0861589A

PATIENT
  Age: 65 Year
  Sex: Male
  Weight: 154.5 kg

DRUGS (10)
  1. AVANDIA [Suspect]
     Indication: DIABETES MELLITUS
     Dates: start: 20030821, end: 20080401
  2. LIPITOR [Concomitant]
  3. ZETIA [Concomitant]
  4. LASIX [Concomitant]
  5. GLUCOVANCE [Concomitant]
  6. VENOFER [Concomitant]
  7. PROTONIX [Concomitant]
  8. FLOMAX [Concomitant]
  9. DIOVAN [Concomitant]
  10. EFFEXOR [Concomitant]

REACTIONS (8)
  - ATRIAL FIBRILLATION [None]
  - CARDIAC FAILURE CONGESTIVE [None]
  - DEVICE RELATED INFECTION [None]
  - DIABETIC CARDIOMYOPATHY [None]
  - IRON DEFICIENCY ANAEMIA [None]
  - MYOCARDIAL INFARCTION [None]
  - STAPHYLOCOCCAL SEPSIS [None]
  - VENTRICULAR TACHYCARDIA [None]
